FAERS Safety Report 24172496 (Version 2)
Quarter: 2024Q4

REPORT INFORMATION
  Report Type: Spontaneous
  Country: US (occurrence: US)
  Receive Date: 20240805
  Receipt Date: 20241130
  Transmission Date: 20250115
  Serious: Yes (Other)
  Sender: AUROBINDO
  Company Number: US-MLMSERVICE-20240724-PI139353-00323-1

PATIENT
  Age: 76 Year
  Sex: Male

DRUGS (7)
  1. PREDNISONE [Suspect]
     Active Substance: PREDNISONE
     Indication: Scleritis
     Dosage: UNK (HIGH-DOSE)
     Route: 048
  2. PREDNISONE [Suspect]
     Active Substance: PREDNISONE
     Indication: Cystoid macular oedema
  3. TRIAMCINOLONE [Suspect]
     Active Substance: TRIAMCINOLONE
     Indication: Cystoid macular oedema
     Dosage: 40 MG/1ML
     Route: 052
  4. TRIAMCINOLONE [Suspect]
     Active Substance: TRIAMCINOLONE
     Indication: Scleritis
  5. METHOTREXATE [Concomitant]
     Active Substance: METHOTREXATE
     Indication: Cystoid macular oedema
     Dosage: UNK
     Route: 065
  6. METHOTREXATE [Concomitant]
     Active Substance: METHOTREXATE
     Indication: Scleritis
  7. RITUXIMAB [Concomitant]
     Active Substance: RITUXIMAB

REACTIONS (4)
  - Endophthalmitis [Recovering/Resolving]
  - Infective scleritis [Recovering/Resolving]
  - Aspergillus infection [Recovering/Resolving]
  - Condition aggravated [Recovering/Resolving]
